FAERS Safety Report 18205784 (Version 1)
Quarter: 2020Q3

REPORT INFORMATION
  Report Type: Other
  Country: US (occurrence: US)
  Receive Date: 20200828
  Receipt Date: 20200828
  Transmission Date: 20201103
  Serious: Yes (Other)
  Sender: FDA-Public Use
  Company Number: US-ROCHE-2664850

PATIENT
  Age: 40 Year
  Sex: Female
  Weight: 68.1 kg

DRUGS (1)
  1. OCREVUS [Suspect]
     Active Substance: OCRELIZUMAB
     Indication: RELAPSING-REMITTING MULTIPLE SCLEROSIS
     Route: 042
     Dates: start: 20180717, end: 20191216

REACTIONS (2)
  - Fungal infection [Recovered/Resolved]
  - Blood immunoglobulin G decreased [Not Recovered/Not Resolved]

NARRATIVE: CASE EVENT DATE: 201901
